FAERS Safety Report 21871544 (Version 2)
Quarter: 2023Q1

REPORT INFORMATION
  Report Type: Spontaneous
  Country: US (occurrence: US)
  Receive Date: 20230117
  Receipt Date: 20230126
  Transmission Date: 20230418
  Serious: Yes (Other)
  Sender: FDA-Public Use
  Company Number: US-Blueprint Medicines Corporation-SP-US-2023-000070

PATIENT
  Sex: Female

DRUGS (2)
  1. AYVAKIT [Suspect]
     Active Substance: AVAPRITINIB
     Indication: Gastrointestinal stromal tumour
     Dosage: TAKE 1 TABLET BY MOUTH EVERY OTHER DAY ALTERNATING WITH 25MG
     Route: 048
     Dates: start: 20210409
  2. AYVAKIT [Suspect]
     Active Substance: AVAPRITINIB
     Dosage: TAKE 1 TABLET BY MOUTH EVERY OTHER DAY ALTERNATING WITH 25MG
     Route: 048
     Dates: start: 20210409

REACTIONS (2)
  - Eye haemorrhage [Not Recovered/Not Resolved]
  - Eye oedema [Not Recovered/Not Resolved]
